FAERS Safety Report 8103411-6 (Version None)
Quarter: 2012Q1

REPORT INFORMATION
  Report Type: 
  Country: None (occurrence: None)
  Receive Date: 20120127
  Receipt Date: 20120120
  Transmission Date: 20120608
  Serious: Yes (Hospitalization)
  Sender: FDA-Public Use
  Company Number: 2011SP054175

PATIENT
  Age: 67 Year
  Sex: Female

DRUGS (3)
  1. TRAZODONE HCL [Concomitant]
  2. LAMICTAL [Concomitant]
  3. SAPHRIS [Suspect]
     Indication: PRODUCT USED FOR UNKNOWN INDICATION
     Dosage: 10 MG; HS; SL
     Route: 060
     Dates: start: 20111027, end: 20111028

REACTIONS (1)
  - ANAPHYLACTIC REACTION [None]
